FAERS Safety Report 4876290-8 (Version None)
Quarter: 2005Q4

REPORT INFORMATION
  Report Type: 
  Country: None (occurrence: None)
  Receive Date: 20051206
  Receipt Date: 20050825
  Transmission Date: 20060501
  Serious: No
  Sender: FDA-Public Use
  Company Number: USA0508105177

PATIENT
  Age: 62 Year
  Sex: Female
  Weight: 68 kg

DRUGS (4)
  1. CYMBALTA [Suspect]
     Indication: NERVE COMPRESSION
     Dosage: 60 MG
     Dates: start: 20050201
  2. KLONOPIN [Concomitant]
  3. ZANTAC [Concomitant]
  4. EFFEXOR [Concomitant]

REACTIONS (4)
  - DYSPNOEA [None]
  - FATIGUE [None]
  - MUSCLE TIGHTNESS [None]
  - MYALGIA [None]
